FAERS Safety Report 16012498 (Version 2)
Quarter: 2019Q1

REPORT INFORMATION
  Report Type: Report from Study
  Country: US (occurrence: US)
  Receive Date: 20190227
  Receipt Date: 20190301
  Transmission Date: 20190418
  Serious: Yes (Death, Other)
  Sender: FDA-Public Use
  Company Number: US-PFIZER INC-2019087552

PATIENT

DRUGS (4)
  1. CAPECITABINE. [Suspect]
     Active Substance: CAPECITABINE
     Indication: OESOPHAGEAL CARCINOMA
     Dosage: UNK, CYCLIC, 2 CYCLES
  2. EVEROLIMUS. [Suspect]
     Active Substance: EVEROLIMUS
     Indication: OESOPHAGEAL CARCINOMA
     Dosage: 2.5 MG, ALTERNATE DAY
     Route: 048
  3. CARBOPLATIN. [Suspect]
     Active Substance: CARBOPLATIN
     Indication: OESOPHAGEAL CARCINOMA
     Dosage: UNK, WEEKLY(ONCE WEEKLY FOR A MAXIMUM OF 6 WEEKS , STARTING ON DAY 1)
  4. OXALIPLATIN. [Suspect]
     Active Substance: OXALIPLATIN
     Indication: OESOPHAGEAL CARCINOMA
     Dosage: UNK, CYCLIC (2 CYCLES)

REACTIONS (1)
  - Intestinal ischaemia [Fatal]
